FAERS Safety Report 8033634-6 (Version None)
Quarter: 2012Q1

REPORT INFORMATION
  Report Type: 
  Country: None (occurrence: None)
  Receive Date: 20120110
  Receipt Date: 20120106
  Transmission Date: 20120608
  Serious: No
  Sender: FDA-Public Use
  Company Number: US-PFIZER INC-2012004862

PATIENT
  Age: 79 Year
  Sex: Male
  Weight: 67.12 kg

DRUGS (4)
  1. DEXAMETHASONE [Concomitant]
     Dosage: UNK
  2. ONDANSETRON [Concomitant]
     Dosage: UNK
  3. CAMPTOSAR [Suspect]
     Indication: GASTROINTESTINAL CARCINOMA
     Dosage: 2 ML, UNK
     Route: 042
     Dates: start: 20111221, end: 20120104
  4. ATROPINE [Concomitant]
     Dosage: UNK

REACTIONS (3)
  - PARAESTHESIA [None]
  - PAIN IN JAW [None]
  - MUSCLE TIGHTNESS [None]
